FAERS Safety Report 9059707 (Version 1)
Quarter: 2013Q1

REPORT INFORMATION
  Report Type: Spontaneous
  Country: US (occurrence: None)
  Receive Date: 20130206
  Receipt Date: 20130206
  Transmission Date: 20140127
  Serious: Yes (Life-Threatening, Hospitalization)
  Sender: FDA-Public Use
  Company Number: None

PATIENT
  Age: 63 Year
  Sex: Male
  Weight: 59.5 kg

DRUGS (2)
  1. BOCEPREVIR [Suspect]
     Dosage: 800 MG TID PO
     Route: 048
     Dates: start: 20121204, end: 20121213
  2. RIBAVIRIN [Suspect]
     Dosage: 400 MG BID PO
     Route: 048
     Dates: start: 20121106, end: 20121213

REACTIONS (1)
  - Pancreatitis [None]
